FAERS Safety Report 14910135 (Version 3)
Quarter: 2018Q3

REPORT INFORMATION
  Report Type: Spontaneous
  Country: PT (occurrence: PT)
  Receive Date: 20180517
  Receipt Date: 20180709
  Transmission Date: 20181010
  Serious: Yes (Other)
  Sender: FDA-Public Use
  Company Number: PT-TERSERA THERAPEUTICS, LLC-2048012

PATIENT
  Age: 85 Year
  Sex: Male
  Weight: 70 kg

DRUGS (7)
  1. PREGABALIN. [Concomitant]
     Active Substance: PREGABALIN
  2. LOSARTAN. [Concomitant]
     Active Substance: LOSARTAN
  3. CYANOCOBALAMIN. [Concomitant]
     Active Substance: CYANOCOBALAMIN
  4. CLOPIDOGREL [Concomitant]
     Active Substance: CLOPIDOGREL BISULFATE
  5. ZOLADEX [Suspect]
     Active Substance: GOSERELIN ACETATE
     Indication: PROSTATE CANCER
     Route: 058
     Dates: start: 20151102
  6. ATORVASTATIN CALCIUM. [Concomitant]
     Active Substance: ATORVASTATIN CALCIUM
  7. GLUCOSAMINE [Concomitant]
     Active Substance: GLUCOSAMINE

REACTIONS (2)
  - Product quality issue [Unknown]
  - Device expulsion [Unknown]

NARRATIVE: CASE EVENT DATE: 20180416
